FAERS Safety Report 8987579 (Version 1)
Quarter: 2012Q4

REPORT INFORMATION
  Report Type: 
  Country: US (occurrence: US)
  Receive Date: 20121227
  Receipt Date: 20121227
  Transmission Date: 20130627
  Serious: Yes (Other)
  Sender: FDA-Public Use
  Company Number: US-BAYER-2012-134488

PATIENT
  Age: 77 Year
  Sex: Female
  Weight: 67.12 kg

DRUGS (3)
  1. BAYER ASPIRIN [Suspect]
     Indication: PAIN RELIEF
     Dosage: 1 DF, ONCE
     Route: 048
     Dates: start: 201211, end: 201211
  2. VYTORIN [Concomitant]
  3. VERAPAMIL [Concomitant]

REACTIONS (4)
  - Swollen tongue [Not Recovered/Not Resolved]
  - Hypoaesthesia oral [Not Recovered/Not Resolved]
  - Hypoaesthesia oral [Not Recovered/Not Resolved]
  - Weight decreased [Recovered/Resolved]
